FAERS Safety Report 11274177 (Version 4)
Quarter: 2015Q4

REPORT INFORMATION
  Report Type: Spontaneous
  Country: US (occurrence: US)
  Receive Date: 20150715
  Receipt Date: 20151112
  Transmission Date: 20160304
  Serious: Yes (Hospitalization, Other)
  Sender: FDA-Public Use
  Company Number: US-VERTEX PHARMACEUTICALS-2015-002918

PATIENT
  Age: 26 Year
  Sex: Male

DRUGS (3)
  1. ORKAMBI [Suspect]
     Active Substance: IVACAFTOR\LUMACAFTOR
     Indication: LIVER DISORDER
  2. CAYSTON [Concomitant]
     Active Substance: AZTREONAM
     Indication: PRODUCT USED FOR UNKNOWN INDICATION
     Dosage: UNK
     Route: 065
     Dates: start: 20140207, end: 20150708
  3. ORKAMBI [Suspect]
     Active Substance: IVACAFTOR\LUMACAFTOR
     Indication: CYSTIC FIBROSIS
     Dosage: 200/125 MG
     Route: 048
     Dates: start: 20150720, end: 20150915

REACTIONS (3)
  - Pneumothorax [Not Recovered/Not Resolved]
  - Hepatic failure [Unknown]
  - Off label use [Unknown]

NARRATIVE: CASE EVENT DATE: 2015
